FAERS Safety Report 10527041 (Version 1)
Quarter: 2014Q4

REPORT INFORMATION
  Report Type: Spontaneous
  Country: US (occurrence: None)
  Receive Date: 20141015
  Receipt Date: 20141015
  Transmission Date: 20150528
  Serious: Yes (Other)
  Sender: FDA-Public Use
  Company Number: None

PATIENT
  Age: 49 Year
  Sex: Female
  Weight: 58.97 kg

DRUGS (1)
  1. ADDERALL [Suspect]
     Active Substance: AMPHETAMINE ASPARTATE\AMPHETAMINE SULFATE\DEXTROAMPHETAMINE SACCHARATE\DEXTROAMPHETAMINE SULFATE
     Indication: ATTENTION DEFICIT/HYPERACTIVITY DISORDER
     Dosage: 2 PILLS
     Route: 048
     Dates: start: 20141009, end: 20141013

REACTIONS (5)
  - Drug effect decreased [None]
  - Product substitution issue [None]
  - Product quality issue [None]
  - Activities of daily living impaired [None]
  - Impaired driving ability [None]

NARRATIVE: CASE EVENT DATE: 20141008
